FAERS Safety Report 9517174 (Version 2)
Quarter: 2013Q3

REPORT INFORMATION
  Report Type: Spontaneous
  Country: US (occurrence: US)
  Receive Date: 20130911
  Receipt Date: 20130917
  Transmission Date: 20140515
  Serious: No
  Sender: FDA-Public Use
  Company Number: US-ASTRAZENECA-2013SE52554

PATIENT
  Age: 69 Year
  Sex: Female
  Weight: 99.8 kg

DRUGS (10)
  1. SYMBICORT [Suspect]
     Indication: RHEUMATOID ARTHRITIS
     Dosage: 160/4.5 MCG, ONE PUFF TWO TIMES A DAY
     Route: 055
  2. SYMBICORT [Suspect]
     Indication: RHEUMATOID LUNG
     Dosage: 160/4.5 MCG, ONE PUFF TWO TIMES A DAY
     Route: 055
  3. SYMBICORT [Suspect]
     Indication: RHEUMATOID ARTHRITIS
     Dosage: 160/4.5 MCG, 2 PUFFS TWO TIMES A DAY
     Route: 055
  4. SYMBICORT [Suspect]
     Indication: RHEUMATOID LUNG
     Dosage: 160/4.5 MCG, 2 PUFFS TWO TIMES A DAY
     Route: 055
  5. SYMBICORT [Suspect]
     Indication: RHEUMATOID ARTHRITIS
     Dosage: 320 MCGS BID
     Route: 055
  6. SYMBICORT [Suspect]
     Indication: RHEUMATOID LUNG
     Dosage: 320 MCGS BID
     Route: 055
  7. MESTINON [Concomitant]
     Indication: MYASTHENIA GRAVIS
  8. GLIPZIDE [Concomitant]
     Indication: DIABETES MELLITUS
  9. ACCUPRIL [Concomitant]
     Indication: BLOOD PRESSURE ABNORMAL
  10. THREE MEDICATIONS [Concomitant]

REACTIONS (4)
  - Diabetes mellitus [Unknown]
  - Off label use [Unknown]
  - Drug dose omission [Unknown]
  - Drug ineffective [Unknown]
